FAERS Safety Report 14109338 (Version 7)
Quarter: 2018Q3

REPORT INFORMATION
  Report Type: Report from Study
  Country: AR (occurrence: AR)
  Receive Date: 20171019
  Receipt Date: 20180925
  Transmission Date: 20181010
  Serious: Yes (Life-Threatening, Hospitalization, Other)
  Sender: FDA-Public Use
  Company Number: PHHY2017AR152050

PATIENT
  Age: 67 Year
  Sex: Female

DRUGS (5)
  1. SANDOSTATIN LAR DEPOT [Suspect]
     Active Substance: OCTREOTIDE ACETATE
     Indication: ACROMEGALY
     Dosage: 20 MG, QMO (EVERY 28 DAYS)
     Route: 065
     Dates: start: 20150101, end: 201708
  2. SANDOSTATIN LAR DEPOT [Suspect]
     Active Substance: OCTREOTIDE ACETATE
     Dosage: UNK
     Route: 065
     Dates: start: 201805
  3. SANDOSTATIN LAR DEPOT [Suspect]
     Active Substance: OCTREOTIDE ACETATE
     Indication: PITUITARY TUMOUR BENIGN
     Dosage: 20 MG, QMO (1 DOSE EVERY 28 DAYS)
     Route: 065
     Dates: start: 2005
  4. METFORMIN [Concomitant]
     Active Substance: METFORMIN HYDROCHLORIDE
     Indication: PRODUCT USED FOR UNKNOWN INDICATION
     Dosage: 750 MG, QD
  5. SANDOSTATIN LAR DEPOT [Suspect]
     Active Substance: OCTREOTIDE ACETATE
     Dosage: 20 MG, QMO (EVERY 28 DAYS)
     Route: 065

REACTIONS (26)
  - Mitral valve incompetence [Unknown]
  - Pulmonary mass [Not Recovered/Not Resolved]
  - Respiratory failure [Recovering/Resolving]
  - Left atrial dilatation [Unknown]
  - Needle issue [Not Recovered/Not Resolved]
  - Pneumonitis [Unknown]
  - Diverticulum intestinal [Unknown]
  - Malaise [Unknown]
  - Leukocytosis [Unknown]
  - Blood glucose increased [Unknown]
  - Memory impairment [Unknown]
  - Feeling abnormal [Recovering/Resolving]
  - Underdose [Not Recovered/Not Resolved]
  - Tonsillitis [Not Recovered/Not Resolved]
  - Oxygen consumption decreased [Not Recovered/Not Resolved]
  - Mycoplasma test positive [Unknown]
  - Urinary tract infection [Unknown]
  - Chest pain [Not Recovered/Not Resolved]
  - Product quality issue [Not Recovered/Not Resolved]
  - Bronchitis [Recovering/Resolving]
  - Adenoma benign [Not Recovered/Not Resolved]
  - Pneumonia [Recovering/Resolving]
  - Renal failure [Unknown]
  - Escherichia infection [Unknown]
  - Anxiety [Recovering/Resolving]
  - Visual impairment [Unknown]

NARRATIVE: CASE EVENT DATE: 20150101
